FAERS Safety Report 6273039-1 (Version None)
Quarter: 2009Q3

REPORT INFORMATION
  Report Type: 
  Country: None (occurrence: None)
  Receive Date: 20090715
  Receipt Date: 20090715
  Transmission Date: 20100115
  Serious: Yes (Other)
  Sender: FDA-Public Use
  Company Number: None

PATIENT
  Sex: Female

DRUGS (2)
  1. LEVITIRACETAM [Suspect]
  2. VALPROIC ACID [Suspect]

REACTIONS (1)
  - CONVULSION [None]
